FAERS Safety Report 12554339 (Version 1)
Quarter: 2016Q3

REPORT INFORMATION
  Report Type: Spontaneous
  Country: US (occurrence: US)
  Receive Date: 20160713
  Receipt Date: 20160713
  Transmission Date: 20161109
  Serious: No
  Sender: FDA-Public Use
  Company Number: US-ROCHE-1768321

PATIENT
  Age: 67 Year
  Sex: Female

DRUGS (3)
  1. PERJETA [Suspect]
     Active Substance: PERTUZUMAB
     Indication: BREAST CANCER
     Dosage: FIRST CYCLE
     Route: 065
     Dates: start: 20160518
  2. HERCEPTIN [Suspect]
     Active Substance: TRASTUZUMAB
     Indication: BREAST CANCER
     Dosage: 8MG/KG; FIRST CYCLE
     Route: 065
     Dates: start: 20160518
  3. ZARXIO [Concomitant]
     Active Substance: FILGRASTIM-SNDZ
     Indication: PROPHYLAXIS
     Dosage: 5MG/KG
     Route: 065
     Dates: start: 20160518

REACTIONS (1)
  - Rash maculo-papular [Not Recovered/Not Resolved]
